FAERS Safety Report 16669960 (Version 2)
Quarter: 2019Q3

REPORT INFORMATION
  Report Type: Spontaneous
  Country: FR (occurrence: FR)
  Receive Date: 20190805
  Receipt Date: 20190820
  Transmission Date: 20191004
  Serious: Yes (Hospitalization)
  Sender: FDA-Public Use
  Company Number: FR-009507513-1907FRA015669

PATIENT
  Age: 73 Year
  Sex: Male

DRUGS (1)
  1. BCG LIVE [Suspect]
     Active Substance: BACILLUS CALMETTE-GUERIN SUBSTRAIN TICE LIVE ANTIGEN
     Indication: BLADDER CANCER
     Dosage: UNK UNK, UNK
     Route: 043
     Dates: start: 20190318, end: 20190318

REACTIONS (3)
  - Rash [Recovered/Resolved]
  - Pruritus generalised [Recovered/Resolved]
  - Bacille Calmette-Guerin scar reactivation [Recovered/Resolved]

NARRATIVE: CASE EVENT DATE: 20190318
